FAERS Safety Report 5403287-1 (Version None)
Quarter: 2007Q3

REPORT INFORMATION
  Report Type: 
  Country: None (occurrence: None)
  Receive Date: 20070801
  Receipt Date: 20070720
  Transmission Date: 20080115
  Serious: Yes (Hospitalization)
  Sender: FDA-Public Use
  Company Number: GB-PFIZER INC-2007062065

PATIENT
  Age: 55 Year
  Sex: Female
  Weight: 60 kg

DRUGS (4)
  1. GABAPENTIN [Suspect]
     Indication: NEURALGIA
  2. FENTANYL [Interacting]
     Indication: GENERAL ANAESTHESIA
     Route: 042
  3. SEVOFLURANE [Interacting]
     Indication: GENERAL ANAESTHESIA
  4. DEXAMETHASONE 0.5MG TAB [Concomitant]

REACTIONS (4)
  - DRUG INTERACTION [None]
  - DYSTONIA [None]
  - MYOTONIA [None]
  - SINUS TACHYCARDIA [None]
